FAERS Safety Report 5124850-1 (Version None)
Quarter: 2006Q4

REPORT INFORMATION
  Report Type: 
  Country: None (occurrence: None)
  Receive Date: 20061011
  Receipt Date: 20061002
  Transmission Date: 20070319
  Serious: Yes (Other)
  Sender: FDA-Public Use
  Company Number: IE-BAYER-200611223BNE

PATIENT
  Age: 83 Year
  Sex: Female

DRUGS (7)
  1. AVELOX [Suspect]
     Indication: RESPIRATORY TRACT INFECTION
     Route: 048
  2. AMIODARONE HCL [Concomitant]
  3. WARFARIN (GENERIC) [Concomitant]
  4. TRITACE [Concomitant]
  5. FUROSEMIDE [Concomitant]
  6. ASPIRIN (GENERIC) [Concomitant]
  7. LIPITOR [Concomitant]

REACTIONS (5)
  - DYSKINESIA [None]
  - HYPERTENSION [None]
  - OCULOGYRATION [None]
  - SYNCOPE [None]
  - VOMITING [None]
